FAERS Safety Report 5912011-5 (Version None)
Quarter: 2008Q4

REPORT INFORMATION
  Report Type: 
  Country: None (occurrence: None)
  Receive Date: 20081006
  Receipt Date: 20080918
  Transmission Date: 20090506
  Serious: Yes (Hospitalization)
  Sender: FDA-Public Use
  Company Number: GRP08000108

PATIENT
  Age: 63 Year
  Sex: Male

DRUGS (4)
  1. RISEDRONATE SODIUM           TABLET, 35MG [Suspect]
     Indication: OSTEOPOROSIS
     Dosage: 35 MG, 1/WEEK, ORAL
     Route: 048
     Dates: start: 20061101, end: 20080701
  2. TESTOSTERONE [Concomitant]
  3. CALCILAC             (CALCIUM CARBONATE, COLECALCIFEROL) [Concomitant]
  4. (CALCIUM CARBONATE, COLECALCIFEROL) [Concomitant]

REACTIONS (2)
  - PERITONITIS [None]
  - SMALL INTESTINAL PERFORATION [None]
